FAERS Safety Report 9332855 (Version 1)
Quarter: 2013Q2

REPORT INFORMATION
  Report Type: Spontaneous
  Country: US (occurrence: US)
  Receive Date: 20130606
  Receipt Date: 20130606
  Transmission Date: 20140414
  Serious: No
  Sender: FDA-Public Use
  Company Number: US-BAYER-2013-069246

PATIENT
  Age: 15 Year
  Sex: Female
  Weight: 59 kg

DRUGS (2)
  1. ALEVE TABLET [Suspect]
     Route: 048
  2. CETIRIZINE [Concomitant]

REACTIONS (1)
  - Incorrect dose administered [None]
